FAERS Safety Report 8764002 (Version 1)
Quarter: 2012Q4

REPORT INFORMATION
  Report Type: 
  Country: US (occurrence: US)
  Receive Date: 20120831
  Receipt Date: 20120831
  Transmission Date: 20130627
  Serious: No
  Sender: FDA-Public Use
  Company Number: US-BAUSCH-2012BL002982

PATIENT
  Age: 65 Year
  Sex: Male

DRUGS (1)
  1. CROMOLYN SODIUM [Suspect]
     Indication: MULTIPLE ALLERGIES
     Dosage: daily dose: 1 SPRAY
     Route: 045
     Dates: start: 201204, end: 201204

REACTIONS (2)
  - Cough [Recovered/Resolved]
  - Dyspnoea [Recovered/Resolved]
